FAERS Safety Report 7913276 (Version 3)
Quarter: 2012Q4

REPORT INFORMATION
  Report Type: 
  Country: US (occurrence: US)
  Receive Date: 20110425
  Receipt Date: 20121017
  Transmission Date: 20130627
  Serious: Yes (Hospitalization)
  Sender: FDA-Public Use
  Company Number: PHHY2011US29902

PATIENT
  Sex: Male
  Weight: 7.71 kg

DRUGS (2)
  1. GLEEVEC [Suspect]
     Indication: CHRONIC MYELOID LEUKAEMIA
     Dosage: 400 mg, QD
     Dates: start: 20101103
  2. GLEEVEC [Suspect]
     Dosage: 600 mg, daily
     Route: 048

REACTIONS (4)
  - Localised infection [Unknown]
  - Impaired healing [Recovered/Resolved]
  - Diabetic complication [Unknown]
  - Wound infection [Recovered/Resolved]
